FAERS Safety Report 7667904-8 (Version None)
Quarter: 2011Q3

REPORT INFORMATION
  Report Type: 
  Country: None (occurrence: None)
  Receive Date: 20110808
  Receipt Date: 20110729
  Transmission Date: 20111222
  Serious: Yes (Hospitalization)
  Sender: FDA-Public Use
  Company Number: US-BIOGENIDEC-2009BI034396

PATIENT
  Age: 60 Year
  Sex: Male
  Weight: 79 kg

DRUGS (6)
  1. FLEXERIL [Concomitant]
     Indication: MUSCLE SPASMS
  2. TYSABRI [Suspect]
     Indication: MULTIPLE SCLEROSIS
     Route: 042
     Dates: start: 20090201, end: 20090701
  3. TYSABRI [Suspect]
     Route: 042
     Dates: start: 20110101
  4. LISINOPRIL [Concomitant]
     Indication: HYPERTENSION
  5. TRILEPTAL [Concomitant]
     Indication: MOOD SWINGS
  6. SERTRALINE HYDROCHLORIDE [Concomitant]
     Indication: MOOD SWINGS

REACTIONS (9)
  - URINARY RETENTION [None]
  - CALCULUS URETERIC [None]
  - RASH [None]
  - URINARY TRACT INFECTION [None]
  - HYPOTENSION [None]
  - LETHARGY [None]
  - CYSTITIS [None]
  - KIDNEY INFECTION [None]
  - ENTEROCOCCAL INFECTION [None]
